FAERS Safety Report 7583325-0 (Version None)
Quarter: 2011Q2

REPORT INFORMATION
  Report Type: 
  Country: None (occurrence: None)
  Receive Date: 20110627
  Receipt Date: 20110627
  Transmission Date: 20111010
  Serious: Yes (Other)
  Sender: FDA-Public Use
  Company Number: None

PATIENT
  Age: 60 Year
  Sex: Male
  Weight: 103.0119 kg

DRUGS (5)
  1. DEGARALIX 240 FERRING [Suspect]
     Indication: PROSTATE CANCER
     Dosage: 240 ONCE SQ
     Route: 058
     Dates: start: 20110610, end: 20110610
  2. PREDNISONE [Concomitant]
  3. ABIRATERONE ACETATE [Concomitant]
  4. XGEVA [Concomitant]
  5. LUPRON [Concomitant]

REACTIONS (6)
  - INJECTION SITE ERYTHEMA [None]
  - INJECTION SITE PAIN [None]
  - INJECTION SITE WARMTH [None]
  - INJECTION SITE REACTION [None]
  - ABDOMINAL PAIN [None]
  - URTICARIA [None]
